FAERS Safety Report 10027992 (Version 1)
Quarter: 2014Q1

REPORT INFORMATION
  Report Type: Spontaneous
  Country: US (occurrence: US)
  Receive Date: 20140321
  Receipt Date: 20140321
  Transmission Date: 20141002
  Serious: Yes (Other)
  Sender: FDA-Public Use
  Company Number: US-BAXTER-2014BAX014089

PATIENT
  Age: 11 Year
  Sex: Female

DRUGS (1)
  1. GAMMAGARD LIQUID [Suspect]
     Indication: NEUROPSYCHIATRIC SYNDROME
     Route: 042

REACTIONS (1)
  - Anti-thyroid antibody positive [Unknown]
